FAERS Safety Report 22624947 (Version 1)
Quarter: 2023Q2

REPORT INFORMATION
  Report Type: Spontaneous
  Country: US (occurrence: US)
  Receive Date: 20230621
  Receipt Date: 20230621
  Transmission Date: 20230722
  Serious: Yes (Other)
  Sender: FDA-Public Use
  Company Number: US-drreddys-SPO/USA/23/0167255

PATIENT
  Age: 75 Year
  Sex: Male

DRUGS (1)
  1. CLOPIDOGREL [Suspect]
     Active Substance: CLOPIDOGREL BISULFATE
     Indication: Coronary artery bypass

REACTIONS (3)
  - Herpes zoster cutaneous disseminated [Recovered/Resolved]
  - Oral herpes zoster [Recovered/Resolved]
  - Product use in unapproved indication [Unknown]
